FAERS Safety Report 20120325 (Version 1)
Quarter: 2021Q4

REPORT INFORMATION
  Report Type: Spontaneous
  Country: US (occurrence: None)
  Receive Date: 20211126
  Receipt Date: 20211126
  Transmission Date: 20220303
  Serious: No
  Sender: FDA-Public Use
  Company Number: None

PATIENT

DRUGS (3)
  1. POTASSIUM CHLORIDE [Suspect]
     Active Substance: POTASSIUM CHLORIDE
     Dosage: OTHER ROUTE : INJECTION;?
     Route: 050
  2. POTASSIUM CHLORIDE [Suspect]
     Active Substance: POTASSIUM CHLORIDE
     Dosage: OTHER ROUTE : INJECTION;?
     Route: 050
  3. POTASSIUM CHLORIDE [Suspect]
     Active Substance: POTASSIUM CHLORIDE
     Dosage: OTHER ROUTE : INJECTION;?
     Route: 050

REACTIONS (4)
  - Wrong product stored [None]
  - Product dispensing error [None]
  - Incorrect dose administered [None]
  - Incorrect route of product administration [None]
